FAERS Safety Report 15341118 (Version 1)
Quarter: 2018Q3

REPORT INFORMATION
  Report Type: Not Available
  Country: US (occurrence: US)
  Receive Date: 20180831
  Receipt Date: 20180831
  Transmission Date: 20181010
  Serious: No
  Sender: FDA-Public Use
  Company Number: US-NEUROCRINE BIOSCIENCES INC.-2018NBI02498

PATIENT
  Age: 19 Year
  Sex: Male

DRUGS (5)
  1. LITHIUM CARBONATE. [Concomitant]
     Active Substance: LITHIUM CARBONATE
  2. INVEGA [Concomitant]
     Active Substance: PALIPERIDONE
  3. LAMICTAL XR [Concomitant]
     Active Substance: LAMOTRIGINE
  4. INGREZZA [Suspect]
     Active Substance: VALBENAZINE
     Indication: TARDIVE DYSKINESIA
     Route: 048
     Dates: start: 20180512, end: 2018
  5. DEPAKOTE ER [Concomitant]
     Active Substance: DIVALPROEX SODIUM

REACTIONS (1)
  - Tremor [Unknown]

NARRATIVE: CASE EVENT DATE: 20180719
